FAERS Safety Report 8769659 (Version 2)
Quarter: 2012Q4

REPORT INFORMATION
  Report Type: 
  Country: TR (occurrence: TR)
  Receive Date: 20120905
  Receipt Date: 20120907
  Transmission Date: 20130627
  Serious: Yes (Other)
  Sender: FDA-Public Use
  Company Number: TR-PFIZER INC-2012216934

PATIENT
  Age: 37 Year
  Sex: Male

DRUGS (2)
  1. CHAMPIX [Suspect]
     Dosage: 0.5 mg, UNK
     Dates: start: 201208, end: 201208
  2. CHAMPIX [Suspect]
     Dosage: 1 mg, UNK
     Dates: start: 201208, end: 20120830

REACTIONS (2)
  - VIIth nerve paralysis [Not Recovered/Not Resolved]
  - Acne [Unknown]
